FAERS Safety Report 13266183 (Version 1)
Quarter: 2017Q1

REPORT INFORMATION
  Report Type: Spontaneous
  Country: US (occurrence: US)
  Receive Date: 20170223
  Receipt Date: 20170223
  Transmission Date: 20170428
  Serious: Yes (Death)
  Sender: FDA-Public Use
  Company Number: US-ACTELION-A-US2017-150016

PATIENT
  Age: 92 Year
  Sex: Female

DRUGS (2)
  1. LIDEX [Concomitant]
     Active Substance: FLUOCINONIDE
     Dosage: BID, PRN
     Route: 061
     Dates: start: 20151109
  2. VALCHLOR [Suspect]
     Active Substance: MECHLORETHAMINE
     Indication: MYCOSIS FUNGOIDES
     Dosage: UNK, QD
     Route: 061
     Dates: start: 20170119

REACTIONS (1)
  - Death [Fatal]

NARRATIVE: CASE EVENT DATE: 20170207
